FAERS Safety Report 16705712 (Version 1)
Quarter: 2019Q3

REPORT INFORMATION
  Report Type: Spontaneous
  Country: US (occurrence: US)
  Receive Date: 20190815
  Receipt Date: 20190815
  Transmission Date: 20191004
  Serious: No
  Sender: FDA-Public Use
  Company Number: US-TEVA-2019-US-1092502

PATIENT
  Age: 64 Year
  Sex: Male
  Weight: 86.17 kg

DRUGS (1)
  1. CETIRIZINE W/PSEUDOEPHEDRINE PROLONGED RELEASE TABLET [Suspect]
     Active Substance: CETIRIZINE HYDROCHLORIDE\PSEUDOEPHEDRINE HYDROCHLORIDE
     Indication: SEASONAL ALLERGY
     Dosage: DOSE STRENGTH: 5MG/120 MG
     Route: 048
     Dates: start: 20190803

REACTIONS (1)
  - Drug ineffective [Unknown]

NARRATIVE: CASE EVENT DATE: 20190803
